FAERS Safety Report 26128447 (Version 3)
Quarter: 2025Q4

REPORT INFORMATION
  Report Type: Spontaneous
  Country: JP (occurrence: JP)
  Receive Date: 20251207
  Receipt Date: 20251229
  Transmission Date: 20260118
  Serious: Yes (Death, Other)
  Sender: AMGEN
  Company Number: JP-KYOWAKIRIN-2025KK020304

PATIENT
  Age: 76 Year
  Sex: Female

DRUGS (27)
  1. DARBEPOETIN ALFA [Suspect]
     Active Substance: DARBEPOETIN ALFA
     Indication: Nephrogenic anaemia
     Dosage: UNK
     Route: 065
  2. EPOETIN ALFA [Suspect]
     Active Substance: ERYTHROPOIETIN
     Indication: Nephrogenic anaemia
     Dosage: 3000 IU, 3X/WEEK
     Route: 065
     Dates: start: 20180609
  3. EPOETIN ALFA [Suspect]
     Active Substance: ERYTHROPOIETIN
     Dosage: 3000 IU, 3X/WEEK
     Route: 065
     Dates: start: 20210122, end: 20221007
  4. EVOCALCET [Suspect]
     Active Substance: EVOCALCET
     Indication: Hyperparathyroidism secondary
     Dosage: 1 MG, 7X/WEEK
     Route: 048
     Dates: start: 20180705, end: 20220223
  5. EVOCALCET [Suspect]
     Active Substance: EVOCALCET
     Dosage: 2 MG, 7X/WEEK
     Route: 048
     Dates: start: 20180705, end: 20220223
  6. DAPRODUSTAT [Suspect]
     Active Substance: DAPRODUSTAT
     Indication: Nephrogenic anaemia
     Dosage: 6 MG, 7X/WEEK
     Route: 048
     Dates: start: 20201008, end: 20210127
  7. OLMESARTAN MEDOXOMIL [Suspect]
     Active Substance: OLMESARTAN MEDOXOMIL
     Indication: Hypertension
     Dosage: 20 MG, 7X/WEEK
     Route: 048
     Dates: start: 20180719, end: 20220223
  8. FUROSEMIDE [Suspect]
     Active Substance: FUROSEMIDE
     Indication: Polyuria
     Dosage: 40 MGX6, 7X/WEEK
     Route: 048
     Dates: start: 20160623, end: 20220601
  9. ZOLPIDEM TARTRATE [Suspect]
     Active Substance: ZOLPIDEM TARTRATE
     Indication: Product used for unknown indication
     Dosage: UNK
     Route: 065
  10. LEVOCARNITINE [Suspect]
     Active Substance: LEVOCARNITINE
     Indication: Carnitine deficiency
     Dosage: 1000 MG, 2X/WEEK
     Route: 042
     Dates: start: 20180123, end: 20220712
  11. KAYEXALATE [Suspect]
     Active Substance: SODIUM POLYSTYRENE SULFONATE
     Indication: Hyperkalaemia
     Dosage: 3.27 GX2, 7X/WEEK
     Route: 048
     Dates: start: 20180131, end: 20220223
  12. POLAPREZINC [Suspect]
     Active Substance: POLAPREZINC
     Indication: Gastritis
     Dosage: 75 MGX2, 7X/WEEK
     Route: 048
     Dates: start: 20180719, end: 20230504
  13. LAFUTIDINE [Suspect]
     Active Substance: LAFUTIDINE
     Indication: Hyperchlorhydria
     Dosage: 10 MG, 7X/WEEK
     Route: 048
     Dates: start: 20160721, end: 20230308
  14. LAFUTIDINE [Suspect]
     Active Substance: LAFUTIDINE
     Indication: Abdominal pain upper
     Dosage: UNK
     Route: 065
  15. FOSRENOL [Suspect]
     Active Substance: LANTHANUM CARBONATE
     Indication: Hyperphosphataemia
     Dosage: 250 MGX3, 7X/WEEK
     Route: 048
     Dates: start: 20200702, end: 20210908
  16. CALTAN [Suspect]
     Active Substance: CALCIUM CARBONATE
     Indication: Hyperphosphataemia
     Dosage: 500 MGX3, 7X/WEEK
     Route: 048
     Dates: start: 20180705, end: 20230504
  17. ATARAX [Suspect]
     Active Substance: HYDROXYZINE HYDROCHLORIDE
     Indication: Miliaria
     Dosage: 25 MG, 7X/WEEK, BEFORE BEDTIME
     Route: 048
     Dates: start: 20210121, end: 20210127
  18. ATARAX [Suspect]
     Active Substance: HYDROXYZINE HYDROCHLORIDE
     Dosage: UNK
     Route: 048
     Dates: start: 20210603
  19. MAXACALCITOL [Concomitant]
     Active Substance: MAXACALCITOL
     Indication: Hyperparathyroidism secondary
     Dosage: 5 UG, 2X/WEEK
     Route: 042
     Dates: start: 20191114, end: 20210504
  20. YOUPATCH [Concomitant]
     Indication: Product used for unknown indication
     Dosage: UNK
     Route: 062
  21. CALONAL [Concomitant]
     Active Substance: ACETAMINOPHEN
     Indication: Product used for unknown indication
     Dosage: UNK
     Route: 048
  22. ALLEGRA [Concomitant]
     Active Substance: FEXOFENADINE HYDROCHLORIDE
     Indication: Product used for unknown indication
     Dosage: UNK
     Route: 048
  23. BETAMETHASONE DIPROPIONATE [Concomitant]
     Active Substance: BETAMETHASONE DIPROPIONATE
     Indication: Miliaria
     Dosage: UNK
     Route: 061
  24. EURAX [Concomitant]
     Active Substance: CROTAMITON
     Indication: Miliaria
     Dosage: UNK
     Route: 061
  25. EURAX [Concomitant]
     Active Substance: CROTAMITON
     Dosage: UNK
     Route: 061
     Dates: start: 20210603
  26. HEPARINOID [Concomitant]
     Indication: Miliaria
     Dosage: UNK
     Route: 061
  27. GENTAMICIN SULFATE [Concomitant]
     Active Substance: GENTAMICIN SULFATE
     Indication: Miliaria
     Dosage: UNK
     Route: 065

REACTIONS (7)
  - Cardiac failure acute [Fatal]
  - Delirium [Unknown]
  - Miliaria [Recovering/Resolving]
  - Insomnia [Unknown]
  - Haemoglobin decreased [Recovered/Resolved]
  - Pulmonary resection [Unknown]
  - Mediastinal lymphadenectomy [Unknown]

NARRATIVE: CASE EVENT DATE: 20200925
